FAERS Safety Report 13566017 (Version 2)
Quarter: 2017Q2

REPORT INFORMATION
  Report Type: Spontaneous
  Country: GB (occurrence: GB)
  Receive Date: 20170520
  Receipt Date: 20170605
  Transmission Date: 20170830
  Serious: Yes (Hospitalization, Other)
  Sender: FDA-Public Use
  Company Number: GB-TEVA-767686ACC

PATIENT
  Age: 19 Year
  Sex: Male
  Weight: 60.3 kg

DRUGS (5)
  1. GABAPENTIN. [Concomitant]
     Active Substance: GABAPENTIN
     Indication: PRODUCT USED FOR UNKNOWN INDICATION
     Route: 065
  2. IFOSFAMIDE. [Suspect]
     Active Substance: IFOSFAMIDE
     Indication: OSTEOSARCOMA
     Dosage: 3000 MG/M2, QCYCLE
     Route: 042
     Dates: start: 20170215
  3. LENVATINIB [Suspect]
     Active Substance: LENVATINIB
     Indication: OSTEOSARCOMA
     Dosage: 20 MILLIGRAM DAILY; 20 MG, QD
     Route: 048
     Dates: start: 20170215, end: 20170314
  4. OXYCONTIN [Concomitant]
     Active Substance: OXYCODONE HYDROCHLORIDE
     Indication: PRODUCT USED FOR UNKNOWN INDICATION
     Route: 065
  5. ETOPOSIDE. [Suspect]
     Active Substance: ETOPOSIDE
     Indication: OSTEOSARCOMA
     Dosage: 100 MG/M2, QCYCLE
     Route: 042
     Dates: start: 20170215

REACTIONS (8)
  - Platelet transfusion [Unknown]
  - Off label use [Unknown]
  - Transfusion [Unknown]
  - Febrile neutropenia [Recovered/Resolved]
  - Pancytopenia [Unknown]
  - Electrolyte imbalance [Unknown]
  - Osteomyelitis [Unknown]
  - Product use in unapproved indication [Unknown]

NARRATIVE: CASE EVENT DATE: 20170319
